FAERS Safety Report 5264122-8 (Version None)
Quarter: 2007Q1

REPORT INFORMATION
  Report Type: 
  Country: None (occurrence: None)
  Receive Date: 20070309
  Receipt Date: 20070221
  Transmission Date: 20070707
  Serious: Yes (Other)
  Sender: FDA-Public Use
  Company Number: 237019

PATIENT
  Age: 21 Year
  Sex: Male
  Weight: 90 kg

DRUGS (4)
  1. XOLAIR [Suspect]
     Indication: ASTHMA
     Dosage: 375 MG, Q2W, UNK
     Dates: start: 20061206
  2. FORASEQ (BRAZIL) (BUDESONIDE, FORMOTEROL FUMARATE) [Suspect]
     Indication: ASTHMA
     Dosage: 12/400 MCG, NASAL
     Route: 045
     Dates: start: 20051001
  3. BEROTEC (FENOTEROL) [Concomitant]
  4. PREDNISONE TAB [Concomitant]

REACTIONS (2)
  - ASTHMA [None]
  - SOMNOLENCE [None]
